FAERS Safety Report 25872948 (Version 1)
Quarter: 2025Q4

REPORT INFORMATION
  Report Type: Spontaneous
  Country: EU (occurrence: EU)
  Receive Date: 20251002
  Receipt Date: 20251002
  Transmission Date: 20260117
  Serious: Yes (Hospitalization)
  Sender: PFIZER
  Company Number: EU-STADA-01452601

PATIENT
  Age: 77 Year
  Sex: Female

DRUGS (3)
  1. AXITINIB [Suspect]
     Active Substance: AXITINIB
     Indication: Papillary renal cell carcinoma
     Dosage: UNK
     Dates: start: 20220929
  2. PEMBROLIZUMAB [Suspect]
     Active Substance: PEMBROLIZUMAB
     Indication: Papillary renal cell carcinoma
     Dosage: UNK
     Dates: start: 20220929
  3. CORTISONE [Concomitant]
     Active Substance: CORTISONE
     Indication: Rash
     Dosage: UNK

REACTIONS (2)
  - Immune reconstitution inflammatory syndrome [Recovering/Resolving]
  - Strongyloidiasis [Recovering/Resolving]
